FAERS Safety Report 12076350 (Version 1)
Quarter: 2016Q1

REPORT INFORMATION
  Report Type: Report from Study
  Country: CA (occurrence: CA)
  Receive Date: 20160215
  Receipt Date: 20160215
  Transmission Date: 20160526
  Serious: Yes (Other)
  Sender: FDA-Public Use
  Company Number: CA-ROCHE-1288257

PATIENT
  Age: 60 Year
  Sex: Female

DRUGS (25)
  1. CELEBREX [Concomitant]
     Active Substance: CELECOXIB
  2. PLAQUENIL [Concomitant]
     Active Substance: HYDROXYCHLOROQUINE SULFATE
  3. ELAVIL [Concomitant]
     Active Substance: AMITRIPTYLINE HYDROCHLORIDE
  4. DIPHENHYDRAMINE HCL [Concomitant]
     Active Substance: DIPHENHYDRAMINE HYDROCHLORIDE
     Indication: PREMEDICATION
     Route: 048
     Dates: start: 20070319
  5. RITUXAN [Suspect]
     Active Substance: RITUXIMAB
     Indication: RHEUMATOID ARTHRITIS
     Dosage: ON 09/OCT/2013, SHE RECEIVED LAST DOSE OF DRUG PRIOR TO EVENT.
     Route: 042
     Dates: start: 20070319
  6. ACETAMINOPHEN. [Concomitant]
     Active Substance: ACETAMINOPHEN
     Indication: PREMEDICATION
     Route: 048
     Dates: start: 20070319
  7. IMURAN [Concomitant]
     Active Substance: AZATHIOPRINE
  8. FOLIC ACID. [Concomitant]
     Active Substance: FOLIC ACID
  9. COUMADIN [Concomitant]
     Active Substance: WARFARIN SODIUM
  10. NEXIUM [Concomitant]
     Active Substance: ESOMEPRAZOLE MAGNESIUM
  11. FOSAMAX [Concomitant]
     Active Substance: ALENDRONATE SODIUM
  12. DILAUDID [Concomitant]
     Active Substance: HYDROMORPHONE HYDROCHLORIDE
  13. VITAMIN B12 [Concomitant]
     Active Substance: CYANOCOBALAMIN
  14. SENOKOT [Concomitant]
     Active Substance: SENNOSIDES
  15. CEFADROXIL. [Concomitant]
     Active Substance: CEFADROXIL
     Dosage: X10 DAYS, X 3
     Route: 065
  16. CYCLOBENZAPRINE [Concomitant]
     Active Substance: CYCLOBENZAPRINE
  17. COLACE [Concomitant]
     Active Substance: DOCUSATE SODIUM
  18. PREDNISONE. [Concomitant]
     Active Substance: PREDNISONE
  19. ALTACE [Concomitant]
     Active Substance: RAMIPRIL
  20. SYNTHROID [Concomitant]
     Active Substance: LEVOTHYROXINE SODIUM
  21. NEURONTIN [Concomitant]
     Active Substance: GABAPENTIN
  22. VESICARE [Concomitant]
     Active Substance: SOLIFENACIN SUCCINATE
  23. METHYLPREDNISOLON [Concomitant]
     Active Substance: METHYLPREDNISOLONE
     Indication: PREMEDICATION
     Route: 042
     Dates: start: 20070319
  24. SULFASALAZINE. [Concomitant]
     Active Substance: SULFASALAZINE
  25. HYDROMORPH CONTIN [Concomitant]
     Active Substance: HYDROMORPHONE

REACTIONS (12)
  - Activities of daily living impaired [Recovering/Resolving]
  - Oxygen saturation decreased [Unknown]
  - Sputum discoloured [Unknown]
  - Dyspnoea [Recovering/Resolving]
  - Oropharyngeal pain [Unknown]
  - Hypertension [Not Recovered/Not Resolved]
  - Pulmonary fibrosis [Unknown]
  - Arthritis infective [Not Recovered/Not Resolved]
  - Lower limb fracture [Unknown]
  - Arthropathy [Unknown]
  - Back injury [Recovering/Resolving]
  - Spinal disorder [Unknown]

NARRATIVE: CASE EVENT DATE: 20131009
